FAERS Safety Report 6862431-X (Version None)
Quarter: 2010Q3

REPORT INFORMATION
  Report Type: 
  Country: None (occurrence: None)
  Receive Date: 20100716
  Receipt Date: 20100629
  Transmission Date: 20110219
  Serious: Yes (Other)
  Sender: FDA-Public Use
  Company Number: 2010AP001131

PATIENT
  Age: 70 Year
  Sex: Female

DRUGS (4)
  1. VALPROIC ACID [Suspect]
     Indication: EPILEPSY
     Dosage: 500 MG, BID;
     Dates: start: 20080101, end: 20081001
  2. MYCOPHENOLATE MOFETIL [Suspect]
     Indication: NEUROPSYCHIATRIC LUPUS
     Dates: start: 20080801
  3. PREDNISONE [Concomitant]
  4. CYCLOPHOSPHAMIDE [Concomitant]

REACTIONS (9)
  - ACTIVITIES OF DAILY LIVING IMPAIRED [None]
  - BEDRIDDEN [None]
  - COGNITIVE DISORDER [None]
  - DEMENTIA [None]
  - DRUG INTERACTION [None]
  - DRUG TOXICITY [None]
  - NEUROPSYCHIATRIC LUPUS [None]
  - PARKINSONISM [None]
  - PERSEVERATION [None]
